FAERS Safety Report 20126122 (Version 1)
Quarter: 2021Q4

REPORT INFORMATION
  Report Type: Spontaneous
  Country: US (occurrence: None)
  Receive Date: 20211127
  Receipt Date: 20211127
  Transmission Date: 20220303
  Serious: Yes (Other)
  Sender: FDA-Public Use
  Company Number: None

PATIENT
  Age: 37 Year
  Sex: Female
  Weight: 99 kg

DRUGS (4)
  1. SECRET ANTIPERSPIRANT/DEODORANT POWDER FRESH [Suspect]
     Active Substance: ALUMINUM ZIRCONIUM TRICHLOROHYDREX GLY
     Indication: Personal hygiene
     Dosage: OTHER QUANTITY : 24 SPRAY(S);?FREQUENCY : EVERY 8 HOURS;?
     Route: 061
     Dates: start: 20200601, end: 20211127
  2. CLARITIN [Concomitant]
     Active Substance: LORATADINE
  3. LISINOPRIL [Concomitant]
     Active Substance: LISINOPRIL
  4. ZOLOFT [Concomitant]
     Active Substance: SERTRALINE HYDROCHLORIDE

REACTIONS (4)
  - Axillary pain [None]
  - Breast pain [None]
  - Recalled product [None]
  - Cyst [None]

NARRATIVE: CASE EVENT DATE: 20211121
